FAERS Safety Report 11370138 (Version 3)
Quarter: 2017Q4

REPORT INFORMATION
  Report Type: Report from Study
  Country: GB (occurrence: GB)
  Receive Date: 20150812
  Receipt Date: 20171106
  Transmission Date: 20180320
  Serious: Yes (Death, Other)
  Sender: FDA-Public Use
  Company Number: GB-BRISTOL-MYERS SQUIBB COMPANY-BMS-2015-051314

PATIENT
  Sex: Male

DRUGS (8)
  1. 5 FLUOROURACIL                     /00098801/ [Suspect]
     Active Substance: FLUOROURACIL
     Indication: ANAL CANCER
     Dosage: UNK
     Route: 058
     Dates: start: 201504
  2. LISINOPRIL. [Concomitant]
     Active Substance: LISINOPRIL
     Indication: HYPERTENSION
     Route: 048
  3. TENOFOVIR [Concomitant]
     Active Substance: TENOFOVIR
     Indication: HIV INFECTION
     Dosage: 245 MG, QD
     Route: 048
     Dates: start: 20101125
  4. LITHIUM. [Concomitant]
     Active Substance: LITHIUM
     Indication: BIPOLAR DISORDER
     Dosage: UNK
     Route: 048
     Dates: start: 2000
  5. LIPITOR [Concomitant]
     Active Substance: ATORVASTATIN CALCIUM
     Indication: BLOOD CHOLESTEROL INCREASED
     Dosage: 20 MG, UNK
     Route: 048
     Dates: start: 2012
  6. RITONAVIR. [Concomitant]
     Active Substance: RITONAVIR
     Indication: HIV INFECTION
     Dosage: 100 MG, UNK
     Route: 048
     Dates: start: 20101204
  7. BENDROFLUMETHIAZIDE [Concomitant]
     Active Substance: BENDROFLUMETHIAZIDE
     Indication: HYPERTENSION
     Dosage: 2.5 MG, UNK
     Route: 048
     Dates: start: 2012
  8. ATAZANAVIR SULFATE. [Suspect]
     Active Substance: ATAZANAVIR SULFATE
     Indication: HIV INFECTION
     Dosage: 300 MG, QD
     Route: 048
     Dates: start: 20101204

REACTIONS (5)
  - Cardiac hypertrophy [Fatal]
  - Anal cancer [Unknown]
  - Arteriosclerosis coronary artery [Fatal]
  - Deep vein thrombosis [Unknown]
  - Myocardial ischaemia [Fatal]

NARRATIVE: CASE EVENT DATE: 2011
